FAERS Safety Report 17302205 (Version 6)
Quarter: 2021Q1

REPORT INFORMATION
  Report Type: Report from Study
  Country: ID (occurrence: ID)
  Receive Date: 20200122
  Receipt Date: 20210120
  Transmission Date: 20210419
  Serious: Yes (Other)
  Sender: FDA-Public Use
  Company Number: ID-ASTRAZENECA-2019SF36638

PATIENT
  Sex: Male

DRUGS (1)
  1. TAGRISSO [Suspect]
     Active Substance: OSIMERTINIB
     Indication: NON-SMALL CELL LUNG CANCER
     Route: 048
     Dates: start: 20190918

REACTIONS (16)
  - Gait disturbance [Unknown]
  - Oropharyngeal discomfort [Unknown]
  - Diarrhoea [Unknown]
  - Dizziness [Unknown]
  - Nausea [Unknown]
  - Pulmonary mass [Unknown]
  - Vertigo [Unknown]
  - Insomnia [Unknown]
  - Eczema asteatotic [Unknown]
  - Decreased appetite [Not Recovered/Not Resolved]
  - Pruritus [Not Recovered/Not Resolved]
  - Tumour marker increased [Unknown]
  - Alopecia [Unknown]
  - Neoplasm progression [Unknown]
  - Weight decreased [Not Recovered/Not Resolved]
  - Mouth ulceration [Recovering/Resolving]
